FAERS Safety Report 10152084 (Version 1)
Quarter: 2014Q2

REPORT INFORMATION
  Report Type: Spontaneous
  Country: US (occurrence: US)
  Receive Date: 20140505
  Receipt Date: 20140505
  Transmission Date: 20141212
  Serious: No
  Sender: FDA-Public Use
  Company Number: US-BRISTOL-MYERS SQUIBB COMPANY-20546453

PATIENT
  Age: 40 Year
  Sex: Female

DRUGS (1)
  1. FARXIGA [Suspect]
     Indication: BLOOD GLUCOSE
     Route: 048
     Dates: start: 20140301, end: 20140306

REACTIONS (1)
  - Nausea [Unknown]
